FAERS Safety Report 9153377 (Version 1)
Quarter: 2013Q1

REPORT INFORMATION
  Report Type: Spontaneous
  Country: DK (occurrence: None)
  Receive Date: 20130204
  Receipt Date: 20130204
  Transmission Date: 20140127
  Serious: Yes (Hospitalization)
  Sender: FDA-Public Use
  Company Number: 2013MA000766

PATIENT
  Age: 70 Year
  Sex: Male

DRUGS (6)
  1. FEVERALL [Suspect]
     Indication: INFLUENZA
     Route: 048
     Dates: start: 20130120, end: 20130120
  2. TIKLID [Concomitant]
  3. FOSTER [Concomitant]
  4. DILTIAZEM [Concomitant]
  5. SIMVASTATIN [Concomitant]
  6. RANITIDINE [Concomitant]

REACTIONS (1)
  - Hypersensitivity [None]
